FAERS Safety Report 7946042-0 (Version None)
Quarter: 2011Q4

REPORT INFORMATION
  Report Type: 
  Country: None (occurrence: None)
  Receive Date: 20111129
  Receipt Date: 20111121
  Transmission Date: 20120403
  Serious: Yes (Hospitalization, Disabling, Other)
  Sender: FDA-Public Use
  Company Number: US-GLAXOSMITHKLINE-A0948984A

PATIENT
  Age: 27 Year
  Sex: Female
  Weight: 59.1 kg

DRUGS (5)
  1. LAMICTAL XR [Suspect]
     Indication: CONVULSION
     Dosage: 100MG VARIABLE DOSE
     Route: 048
  2. TOPAMAX [Concomitant]
     Dosage: 100MG UNKNOWN
  3. FOLIC ACID [Concomitant]
     Dosage: 4MG PER DAY
  4. VITAMIN D [Concomitant]
  5. AMBIEN [Concomitant]
     Dosage: 10MG AS REQUIRED

REACTIONS (4)
  - CONVULSION [None]
  - DRUG LEVEL DECREASED [None]
  - PRODUCT QUALITY ISSUE [None]
  - GRAND MAL CONVULSION [None]
